FAERS Safety Report 8256179-7 (Version None)
Quarter: 2012Q2

REPORT INFORMATION
  Report Type: 
  Country: None (occurrence: None)
  Receive Date: 20120403
  Receipt Date: 20120328
  Transmission Date: 20120825
  Serious: Yes (Other)
  Sender: FDA-Public Use
  Company Number: US-PFIZER INC-2012080072

PATIENT
  Sex: Female
  Weight: 77.1 kg

DRUGS (6)
  1. LYRICA [Suspect]
     Indication: FIBROMYALGIA
     Dosage: 150 MG, 2X/DAY
     Route: 048
     Dates: start: 20060101, end: 20120121
  2. TRAMADOL [Concomitant]
     Dosage: 50 MG, UNK
  3. CELEXA [Concomitant]
     Dosage: 20 MG, UNK
  4. NAPROXEN [Concomitant]
     Dosage: 550 MG, UNK
  5. FIORICET [Concomitant]
     Dosage: UNK
  6. LEVOXYL [Concomitant]
     Indication: HYPOTHYROIDISM
     Dosage: UNK

REACTIONS (6)
  - VITAMIN D DECREASED [None]
  - RED BLOOD CELL SEDIMENTATION RATE INCREASED [None]
  - THYROID FUNCTION TEST ABNORMAL [None]
  - WEIGHT INCREASED [None]
  - MALAISE [None]
  - FEELING ABNORMAL [None]
